FAERS Safety Report 16926106 (Version 1)
Quarter: 2019Q4

REPORT INFORMATION
  Report Type: Spontaneous
  Country: US (occurrence: US)
  Receive Date: 20190823
  Receipt Date: 20190823
  Transmission Date: 20200122
  Serious: Yes (Other)
  Sender: FDA-Public Use
  Company Number: None

PATIENT
  Age: 81 Year
  Sex: Female
  Weight: 68.04 kg

DRUGS (3)
  1. TYLENOL [Concomitant]
     Active Substance: ACETAMINOPHEN
  2. DILANTIN [Suspect]
     Active Substance: PHENYTOIN
  3. PHENOBARBITAL. [Concomitant]
     Active Substance: PHENOBARBITAL

REACTIONS (1)
  - Bone disorder [None]
